FAERS Safety Report 22341059 (Version 1)
Quarter: 2023Q2

REPORT INFORMATION
  Report Type: Spontaneous
  Country: US (occurrence: None)
  Receive Date: 20230518
  Receipt Date: 20230518
  Transmission Date: 20230721
  Serious: Yes (Other)
  Sender: FDA-Public Use
  Company Number: None

PATIENT
  Sex: Female

DRUGS (17)
  1. DALFAMPRIDINE [Suspect]
     Active Substance: DALFAMPRIDINE
     Indication: Multiple sclerosis
     Route: 048
     Dates: start: 20181030
  2. ADDERALL XR [Concomitant]
     Active Substance: AMPHETAMINE ASPARTATE\AMPHETAMINE SULFATE\DEXTROAMPHETAMINE SACCHARATE\DEXTROAMPHETAMINE SULFATE
  3. ALBUTEROL [Concomitant]
     Active Substance: ALBUTEROL
  4. ALODIPINE [Concomitant]
  5. AMPHET/DEXTR [Concomitant]
  6. ASPIRIN LOW CHW [Concomitant]
  7. BENZONATATE [Concomitant]
     Active Substance: BENZONATATE
  8. ESTRADIOL [Concomitant]
     Active Substance: ESTRADIOL
  9. IBANDRONATE SODIUM [Concomitant]
     Active Substance: IBANDRONATE SODIUM
  10. IMVEXXY MAIN SUP [Concomitant]
  11. IPRATROPIUM SOL [Concomitant]
  12. LEVOTHYROXIN [Concomitant]
  13. LOSARTAN POT [Concomitant]
  14. METHYLPRED [Concomitant]
  15. MYRBETRIQ [Concomitant]
     Active Substance: MIRABEGRON
  16. PROZAC [Concomitant]
     Active Substance: FLUOXETINE HYDROCHLORIDE
  17. ROSUVASTATIN [Concomitant]
     Active Substance: ROSUVASTATIN

REACTIONS (3)
  - Cardiac disorder [None]
  - Coronary arterial stent insertion [None]
  - Balance disorder [None]
